FAERS Safety Report 14120676 (Version 1)
Quarter: 2017Q4

REPORT INFORMATION
  Report Type: Spontaneous
  Country: US (occurrence: US)
  Receive Date: 20171024
  Receipt Date: 20171024
  Transmission Date: 20180321
  Serious: No
  Sender: FDA-Public Use
  Company Number: PHEH2017US033710

PATIENT
  Sex: Male

DRUGS (3)
  1. TRAMADOL HYDROCHLORIDE TABLETS [Suspect]
     Active Substance: TRAMADOL HYDROCHLORIDE
     Indication: PERINEAL DISORDER
     Route: 065
  2. TYLENOL [Concomitant]
     Active Substance: ACETAMINOPHEN
     Indication: PERINEAL DISORDER
     Route: 065
  3. CODEINE [Concomitant]
     Active Substance: CODEINE
     Indication: PERINEAL DISORDER
     Route: 065

REACTIONS (1)
  - Drug ineffective [Unknown]
